FAERS Safety Report 16582496 (Version 1)
Quarter: 2019Q3

REPORT INFORMATION
  Report Type: Spontaneous
  Country: FR (occurrence: FR)
  Receive Date: 20190717
  Receipt Date: 20190717
  Transmission Date: 20191004
  Serious: Yes (Hospitalization)
  Sender: FDA-Public Use
  Company Number: FR-ACCORD-138673

PATIENT
  Age: 71 Year
  Sex: Male
  Weight: 70.8 kg

DRUGS (10)
  1. TADALAFIL. [Suspect]
     Active Substance: TADALAFIL
     Indication: BENIGN PROSTATIC HYPERPLASIA
     Route: 048
     Dates: end: 201905
  2. KARDEGIC [Suspect]
     Active Substance: ASPIRIN DL-LYSINE
     Indication: THROMBOSIS PROPHYLAXIS
     Route: 048
  3. PERMIXON [Concomitant]
     Active Substance: HERBALS\SAW PALMETTO
  4. MECIR [Concomitant]
     Active Substance: TAMSULOSIN HYDROCHLORIDE
  5. BISOPROLOL [Concomitant]
     Active Substance: BISOPROLOL
  6. BRILIQUE [Suspect]
     Active Substance: TICAGRELOR
     Indication: THROMBOSIS PROPHYLAXIS
     Route: 048
     Dates: end: 201905
  7. RAMIPRIL. [Concomitant]
     Active Substance: RAMIPRIL
  8. CRESTOR [Concomitant]
     Active Substance: ROSUVASTATIN CALCIUM
  9. INEXIUM [Concomitant]
     Active Substance: ESOMEPRAZOLE
  10. OFLOCET [Concomitant]
     Active Substance: OFLOXACIN

REACTIONS (1)
  - Subdural haematoma [Recovering/Resolving]

NARRATIVE: CASE EVENT DATE: 20190529
